FAERS Safety Report 10892657 (Version 1)
Quarter: 2015Q1

REPORT INFORMATION
  Report Type: Report from Study
  Country: JP (occurrence: JP)
  Receive Date: 20150306
  Receipt Date: 20150306
  Transmission Date: 20150721
  Serious: Yes (Other)
  Sender: FDA-Public Use
  Company Number: JP-009507513-1503JPN002516

PATIENT
  Age: 55 Year
  Sex: Female
  Weight: 56 kg

DRUGS (13)
  1. PEGINTRON [Suspect]
     Active Substance: PEGINTERFERON ALFA-2B
     Indication: CHRONIC HEPATITIS C
     Dosage: 1.5 MICROGRAM PER KILOGRAM, QW
     Route: 058
     Dates: start: 20140730, end: 20140812
  2. NEUROTROPIN [Concomitant]
     Active Substance: NEUROTROPIN
     Indication: SEBORRHOEIC DERMATITIS
     Dosage: 3 ML, QD
     Route: 065
  3. CELTECT [Concomitant]
     Active Substance: OXATOMIDE
     Indication: SEBORRHOEIC DERMATITIS
     Dosage: 30 MG, QD
     Route: 048
     Dates: start: 20140811
  4. PEGINTRON [Suspect]
     Active Substance: PEGINTERFERON ALFA-2B
     Dosage: 0.5 MICROGRAM PER KILOGRAM, QW
     Dates: start: 20140827, end: 20140909
  5. PEGINTRON [Suspect]
     Active Substance: PEGINTERFERON ALFA-2B
     Dosage: 1 MICROGRAM PER KILOGRAM, QW
     Route: 058
     Dates: start: 20140813, end: 20140826
  6. SIMEPREVIR [Suspect]
     Active Substance: SIMEPREVIR
     Indication: CHRONIC HEPATITIS C
     Dosage: 100 MG, QD
     Route: 048
     Dates: start: 20140730, end: 20141021
  7. ALLEGRA [Concomitant]
     Active Substance: FEXOFENADINE HYDROCHLORIDE
     Indication: SEBORRHOEIC DERMATITIS
     Dosage: 60 MG, QD
     Route: 048
     Dates: start: 20140811
  8. PEGINTRON [Suspect]
     Active Substance: PEGINTERFERON ALFA-2B
     Dosage: 0.9 MICROGRAM PER KILOGRAM, QW
     Route: 058
     Dates: start: 20141008
  9. RIBAVIRIN. [Suspect]
     Active Substance: RIBAVIRIN
     Indication: CHRONIC HEPATITIS C
     Dosage: 600 MG, QD
     Route: 048
     Dates: start: 20140730
  10. PEGINTRON [Suspect]
     Active Substance: PEGINTERFERON ALFA-2B
     Dosage: 0.7 MICROGRAM PER KILOGRAM, QW
     Route: 058
     Dates: start: 20140910, end: 20141007
  11. NEO-MINOPHAGEN C [Concomitant]
     Active Substance: AMMONIUM GLYCYRRHIZATE
     Indication: SEBORRHOEIC DERMATITIS
     Dosage: 20 ML, QW
     Route: 065
  12. LUVOX [Concomitant]
     Active Substance: FLUVOXAMINE MALEATE
     Indication: SEBORRHOEIC DERMATITIS
     Dosage: 50 MG, QD
     Route: 048
  13. CLARITIN TABLETS 10 MG [Concomitant]
     Indication: SEBORRHOEIC DERMATITIS
     Dosage: 10 MG, QD
     Route: 048

REACTIONS (1)
  - Neutrophil count decreased [Recovering/Resolving]

NARRATIVE: CASE EVENT DATE: 20140813
